FAERS Safety Report 25071141 (Version 1)
Quarter: 2025Q1

REPORT INFORMATION
  Report Type: Report from Study
  Country: US (occurrence: US)
  Receive Date: 20250312
  Receipt Date: 20250312
  Transmission Date: 20250409
  Serious: Yes (Other)
  Sender: ABBVIE
  Company Number: US-ABBVIE-6146684

PATIENT
  Age: 52 Year
  Sex: Female

DRUGS (1)
  1. RINVOQ [Suspect]
     Active Substance: UPADACITINIB
     Indication: Ankylosing spondylitis
     Route: 048
     Dates: start: 20250204, end: 20250219

REACTIONS (35)
  - Respiratory arrest [Unknown]
  - Headache [Recovering/Resolving]
  - Fatigue [Recovering/Resolving]
  - Pruritus [Unknown]
  - Anxiety [Recovering/Resolving]
  - Hypotension [Unknown]
  - Dizziness [Unknown]
  - Cold sweat [Unknown]
  - Confusional state [Unknown]
  - Illness [Unknown]
  - Pain in extremity [Unknown]
  - Nausea [Unknown]
  - Skin burning sensation [Not Recovered/Not Resolved]
  - Drug ineffective [Unknown]
  - Dyspepsia [Unknown]
  - Malaise [Unknown]
  - Abdominal distension [Unknown]
  - Feeling hot [Unknown]
  - Dry mouth [Unknown]
  - Visual impairment [Unknown]
  - Flushing [Unknown]
  - Dry skin [Unknown]
  - Diarrhoea [Unknown]
  - Neck pain [Unknown]
  - Hypoaesthesia [Unknown]
  - Inflammation [Unknown]
  - Pyrexia [Unknown]
  - Decreased appetite [Unknown]
  - Hypoaesthesia oral [Unknown]
  - Sinus disorder [Unknown]
  - Dysphagia [Unknown]
  - Angina pectoris [Unknown]
  - Head discomfort [Unknown]
  - Joint range of motion decreased [Unknown]
  - Somnolence [Unknown]

NARRATIVE: CASE EVENT DATE: 20250101
